FAERS Safety Report 25744399 (Version 3)
Quarter: 2025Q3

REPORT INFORMATION
  Report Type: Report from Study
  Country: CO (occurrence: CO)
  Receive Date: 20250901
  Receipt Date: 20250925
  Transmission Date: 20251020
  Serious: Yes (Other)
  Sender: TAKEDA
  Company Number: CO-TAKEDA-2025TUS075592

PATIENT
  Age: 51 Year
  Sex: Male

DRUGS (3)
  1. ADVATE [Suspect]
     Active Substance: ANTIHEMOPHILIC FACTOR, HUMAN RECOMBINANT
     Indication: Contusion
  2. ADVATE [Suspect]
     Active Substance: ANTIHEMOPHILIC FACTOR, HUMAN RECOMBINANT
     Indication: Prophylaxis
     Dosage: 2500 INTERNATIONAL UNIT, Q12H
  3. ADVATE [Suspect]
     Active Substance: ANTIHEMOPHILIC FACTOR, HUMAN RECOMBINANT
     Indication: Factor VII deficiency
     Dosage: 2500 INTERNATIONAL UNIT, Q12H
     Dates: start: 20250401

REACTIONS (6)
  - Haemorrhage [Unknown]
  - Haemarthrosis [Recovered/Resolved]
  - Pain [Unknown]
  - Feeling hot [Unknown]
  - Oedema peripheral [Unknown]
  - Arthritis [Unknown]

NARRATIVE: CASE EVENT DATE: 20250821
